FAERS Safety Report 19589822 (Version 3)
Quarter: 2021Q3

REPORT INFORMATION
  Report Type: Spontaneous
  Country: US (occurrence: US)
  Receive Date: 20210721
  Receipt Date: 20210806
  Transmission Date: 20211014
  Serious: Yes (Hospitalization)
  Sender: FDA-Public Use
  Company Number: US-ALLERGAN-2126003US

PATIENT
  Sex: Female

DRUGS (7)
  1. VITAMIN D3 [Concomitant]
     Active Substance: CHOLECALCIFEROL
  2. REFRESH TEARS [Suspect]
     Active Substance: CARBOXYMETHYLCELLULOSE SODIUM
     Indication: DRY EYE
     Dosage: 1?2 DROPS IN EACH EYE AS NEEDED/4 TIMES A DAY
     Route: 047
     Dates: start: 20210521
  3. BLOOD THINNERS [Concomitant]
     Active Substance: UNSPECIFIED INGREDIENT
     Indication: COAGULOPATHY
  4. REFRESH TEARS [Suspect]
     Active Substance: CARBOXYMETHYLCELLULOSE SODIUM
     Indication: EYE IRRITATION
  5. VITAMIN K [Concomitant]
     Active Substance: PHYTONADIONE
     Indication: PLATELET ADHESIVENESS DECREASED
  6. CALCIUM [Concomitant]
     Active Substance: CALCIUM
     Dosage: UNK
  7. UNSPECIFIED ALLERGY SHOT [Concomitant]
     Indication: SEASONAL ALLERGY
     Dosage: ONCE A WEEK

REACTIONS (7)
  - Amnesia [Recovered/Resolved]
  - Peripheral swelling [Recovered/Resolved]
  - Vertigo [Unknown]
  - Ecchymosis [Recovered/Resolved]
  - Product delivery mechanism issue [Unknown]
  - Thrombosis [Recovered/Resolved]
  - Thrombocytopenia [Unknown]

NARRATIVE: CASE EVENT DATE: 20210521
